FAERS Safety Report 13141157 (Version 1)
Quarter: 2017Q1

REPORT INFORMATION
  Report Type: Report from Study
  Country: US (occurrence: US)
  Receive Date: 20170123
  Receipt Date: 20170123
  Transmission Date: 20170428
  Serious: Yes (Other)
  Sender: FDA-Public Use
  Company Number: US-MALLINCKRODT-T201603318

PATIENT
  Age: 74 Year
  Sex: Female

DRUGS (5)
  1. REPOSITORY CORTICOTROPIN INJECTION [Suspect]
     Active Substance: CORTICOTROPIN
     Indication: RHEUMATOID ARTHRITIS
     Dosage: 60U/.75ML THREE TIMES PER WK (TUES/THURS./SAT.)
     Route: 058
     Dates: start: 20130501, end: 2016
  2. REPOSITORY CORTICOTROPIN INJECTION [Suspect]
     Active Substance: CORTICOTROPIN
     Dosage: 48U/0.6ML, EVERY OTHER DAY
     Route: 058
     Dates: start: 20130501
  3. REPOSITORY CORTICOTROPIN INJECTION [Suspect]
     Active Substance: CORTICOTROPIN
     Dosage: 80U/1ML EVERY OTHER DAY X3 INJECTIONS
     Route: 058
     Dates: start: 2016, end: 2016
  4. REPOSITORY CORTICOTROPIN INJECTION [Suspect]
     Active Substance: CORTICOTROPIN
     Indication: SYSTEMIC LUPUS ERYTHEMATOSUS
     Dosage: 48U/0.5ML, EVERY OTHER DAY
     Route: 058
     Dates: start: 2016
  5. REPOSITORY CORTICOTROPIN INJECTION [Suspect]
     Active Substance: CORTICOTROPIN
     Dosage: 48 UNITS/0.6 ML EVERY OTHER DAY
     Route: 058
     Dates: start: 20130501, end: 201608

REACTIONS (14)
  - Peripheral swelling [Not Recovered/Not Resolved]
  - Drug effect delayed [Not Recovered/Not Resolved]
  - Laryngitis [Unknown]
  - Oral mucosal erythema [Not Recovered/Not Resolved]
  - Tooth loss [Not Recovered/Not Resolved]
  - Fatigue [Unknown]
  - Movement disorder [Not Recovered/Not Resolved]
  - Pneumonia [Recovering/Resolving]
  - Arthritis [Not Recovered/Not Resolved]
  - Stomatitis [Not Recovered/Not Resolved]
  - Rheumatoid nodule [Not Recovered/Not Resolved]
  - Malaise [Not Recovered/Not Resolved]
  - Pain [Not Recovered/Not Resolved]
  - Pain in extremity [Not Recovered/Not Resolved]

NARRATIVE: CASE EVENT DATE: 2016
